FAERS Safety Report 9312897 (Version 2)
Quarter: 2013Q2

REPORT INFORMATION
  Report Type: Spontaneous
  Country: NC (occurrence: FR)
  Receive Date: 20130528
  Receipt Date: 20130607
  Transmission Date: 20140414
  Serious: Yes (Other)
  Sender: FDA-Public Use
  Company Number: FR-ASTRAZENECA-2013SE35083

PATIENT
  Age: 57 Year
  Sex: Female

DRUGS (1)
  1. XEROQUEL [Suspect]
     Indication: BIPOLAR DISORDER
     Route: 048
     Dates: start: 20130328

REACTIONS (3)
  - Menorrhagia [Recovering/Resolving]
  - Breast enlargement [Unknown]
  - Weight increased [Unknown]
